FAERS Safety Report 23649133 (Version 2)
Quarter: 2024Q3

REPORT INFORMATION
  Report Type: Spontaneous
  Country: US (occurrence: US)
  Receive Date: 20240319
  Receipt Date: 20240712
  Transmission Date: 20241017
  Serious: Yes (Hospitalization, Other)
  Sender: MARINUS PHARMACEUTICALS
  Company Number: US-MARINUS PHARMACEUTICALS, INC.-MAR2024000031

PATIENT

DRUGS (5)
  1. ZTALMY [Suspect]
     Active Substance: GANAXOLONE
     Indication: Lennox-Gastaut syndrome
     Dosage: 12 MILLILITER, TID
     Route: 048
     Dates: start: 20231025
  2. ZTALMY [Suspect]
     Active Substance: GANAXOLONE
     Dosage: 8 MILLILITER, TID
     Dates: start: 2024
  3. PERAMPANEL [Concomitant]
     Active Substance: PERAMPANEL
     Indication: Nervous system disorder
     Dosage: 22 MILLILITER
     Route: 065
  4. ZONISAMIDE [Concomitant]
     Active Substance: ZONISAMIDE
     Indication: Product used for unknown indication
     Dosage: 200 MILLIGRAM, BID
     Route: 065
  5. CLONIDINE [Concomitant]
     Active Substance: CLONIDINE
     Indication: Product used for unknown indication
     Dosage: 0.3 MILLIGRAM
     Route: 065

REACTIONS (3)
  - Chronic respiratory failure [Not Recovered/Not Resolved]
  - Cough [Unknown]
  - Secretion discharge [Unknown]

NARRATIVE: CASE EVENT DATE: 20240101
